FAERS Safety Report 18458350 (Version 16)
Quarter: 2023Q1

REPORT INFORMATION
  Report Type: Spontaneous
  Country: US (occurrence: US)
  Receive Date: 20201103
  Receipt Date: 20230201
  Transmission Date: 20230417
  Serious: Yes (Hospitalization, Other)
  Sender: FDA-Public Use
  Company Number: US-PFIZER INC-2020421972

PATIENT
  Age: 77 Year
  Sex: Male

DRUGS (2)
  1. XELJANZ [Suspect]
     Active Substance: TOFACITINIB CITRATE
     Dosage: 5 MG, 1X/DAY
  2. XELJANZ [Suspect]
     Active Substance: TOFACITINIB CITRATE
     Dosage: 10 MG, 1X/DAY

REACTIONS (18)
  - COVID-19 [Unknown]
  - Myocardial infarction [Unknown]
  - Near death experience [Unknown]
  - Thrombosis [Unknown]
  - Staphylococcal infection [Unknown]
  - Infection [Unknown]
  - Cystitis [Unknown]
  - Pain in extremity [Unknown]
  - Gait disturbance [Unknown]
  - Balance disorder [Unknown]
  - Arthropathy [Unknown]
  - Arthritis [Unknown]
  - Musculoskeletal stiffness [Unknown]
  - Headache [Unknown]
  - Hypotonia [Unknown]
  - Hypoacusis [Unknown]
  - Cerebral disorder [Unknown]
  - Urinary incontinence [Unknown]

NARRATIVE: CASE EVENT DATE: 20201216
